FAERS Safety Report 10559410 (Version 1)
Quarter: 2014Q4

REPORT INFORMATION
  Report Type: Spontaneous
  Country: US (occurrence: None)
  Receive Date: 20141031
  Receipt Date: 20141031
  Transmission Date: 20150529
  Serious: Yes (Hospitalization, Other)
  Sender: FDA-Public Use
  Company Number: None

PATIENT
  Age: 89 Year
  Weight: 142.7 kg

DRUGS (27)
  1. IVIG [Suspect]
     Active Substance: HUMAN IMMUNOGLOBULIN G
     Indication: IMMUNODEFICIENCY COMMON VARIABLE
     Dosage: 45GN DAILY X1DAY?EVERY 4 WEEKS?IV (PERIPHERAL LINAR)
     Route: 042
     Dates: start: 20141023
  2. ASPIRIN. [Concomitant]
     Active Substance: ASPIRIN
  3. MICRO-K [Concomitant]
     Active Substance: POTASSIUM CHLORIDE
  4. MUCINEX [Concomitant]
     Active Substance: GUAIFENESIN
  5. VITAMIN B12 [Concomitant]
     Active Substance: CYANOCOBALAMIN
  6. MAALOX ANTACID [Concomitant]
     Active Substance: ALUMINUM HYDROXIDE\DIMETHICONE\MAGNESIUM HYDROXIDE
  7. NITROSTAT [Concomitant]
     Active Substance: NITROGLYCERIN
  8. PEPCID [Concomitant]
     Active Substance: FAMOTIDINE
  9. VITAMIN D3 [Concomitant]
     Active Substance: CHOLECALCIFEROL
  10. CARDIAM [Concomitant]
  11. LORTAB [Concomitant]
     Active Substance: ACETAMINOPHEN\HYDROCODONE BITARTRATE
  12. PROTONIX [Concomitant]
     Active Substance: PANTOPRAZOLE SODIUM
  13. PROVIGIL [Concomitant]
     Active Substance: MODAFINIL
  14. DIAZEPAM. [Concomitant]
     Active Substance: DIAZEPAM
  15. ALBUTEROL INHALATION [Concomitant]
     Active Substance: ALBUTEROL
  16. SURFAK [Concomitant]
  17. SYMBICORT [Concomitant]
     Active Substance: BUDESONIDE\FORMOTEROL FUMARATE DIHYDRATE
  18. BACTRIM DS [Concomitant]
     Active Substance: SULFAMETHOXAZOLE\TRIMETHOPRIM
  19. CULTURELLE [Concomitant]
     Active Substance: LACTOBACILLUS RHAMNOSUS
  20. NEURONRIN [Concomitant]
  21. PREDNISONE. [Concomitant]
     Active Substance: PREDNISONE
  22. SEROQUEL [Concomitant]
     Active Substance: QUETIAPINE FUMARATE
  23. IVIG [Suspect]
     Active Substance: HUMAN IMMUNOGLOBULIN G
     Dosage: 45GN DAILY X1DAY?EVERY 4 WEEKS?IV (PERIPHERAL LINAR)
     Route: 042
     Dates: start: 20141023
  24. COUMADIN [Concomitant]
     Active Substance: WARFARIN SODIUM
  25. IPRATROPIUM [Concomitant]
     Active Substance: IPRATROPIUM
  26. LASIX [Concomitant]
     Active Substance: FUROSEMIDE
  27. PAXIL [Concomitant]
     Active Substance: PAROXETINE HYDROCHLORIDE

REACTIONS (1)
  - Myocardial infarction [None]

NARRATIVE: CASE EVENT DATE: 20141024
